FAERS Safety Report 11795860 (Version 1)
Quarter: 2015Q4

REPORT INFORMATION
  Report Type: Spontaneous
  Country: GB (occurrence: GB)
  Receive Date: 20151203
  Receipt Date: 20151203
  Transmission Date: 20160305
  Serious: Yes (Other)
  Sender: FDA-Public Use
  Company Number: GB-AUROBINDO-AUR-APL-2013-04679

PATIENT
  Age: 26 Year
  Sex: Female

DRUGS (30)
  1. TRAMADOL 50MG CAPSULES, HARD [Suspect]
     Active Substance: TRAMADOL
     Indication: MYALGIA
  2. TRAMADOL 50MG CAPSULES, HARD [Suspect]
     Active Substance: TRAMADOL
     Indication: OSTEOARTHRITIS
  3. NAPROXEN TABLETS 250 MG [Suspect]
     Active Substance: NAPROXEN
     Indication: OSTEOARTHRITIS
  4. DICLOFENAC [Suspect]
     Active Substance: DICLOFENAC
     Indication: OSTEOARTHRITIS
  5. LEFLUNOMIDE. [Suspect]
     Active Substance: LEFLUNOMIDE
     Indication: OSTEOPOROSIS
  6. NAPROXEN TABLETS 250 MG [Suspect]
     Active Substance: NAPROXEN
     Indication: MYALGIA
  7. NAPROXEN TABLETS 250 MG [Suspect]
     Active Substance: NAPROXEN
     Indication: RHEUMATOID ARTHRITIS
  8. DICLOFENAC [Suspect]
     Active Substance: DICLOFENAC
     Indication: HYPERMOBILITY SYNDROME
  9. LEFLUNOMIDE. [Suspect]
     Active Substance: LEFLUNOMIDE
     Indication: MYALGIA
  10. LEFLUNOMIDE. [Suspect]
     Active Substance: LEFLUNOMIDE
     Indication: OSTEOARTHRITIS
  11. COCODAMOL [Suspect]
     Active Substance: ACETAMINOPHEN\CODEINE PHOSPHATE
     Indication: OSTEOARTHRITIS
  12. DICLOFENAC [Suspect]
     Active Substance: DICLOFENAC
     Indication: OSTEOPOROSIS
  13. LEFLUNOMIDE. [Suspect]
     Active Substance: LEFLUNOMIDE
     Indication: RHEUMATOID ARTHRITIS
  14. TRAMADOL 50MG CAPSULES, HARD [Suspect]
     Active Substance: TRAMADOL
     Indication: PAIN
     Dosage: UNK UNK,UNK,
     Route: 065
  15. TRAMADOL 50MG CAPSULES, HARD [Suspect]
     Active Substance: TRAMADOL
     Indication: OSTEOPOROSIS
  16. NAPROXEN TABLETS 250 MG [Suspect]
     Active Substance: NAPROXEN
     Indication: HYPERMOBILITY SYNDROME
  17. COCODAMOL [Suspect]
     Active Substance: ACETAMINOPHEN\CODEINE PHOSPHATE
     Indication: RHEUMATOID ARTHRITIS
  18. TRAMADOL 50MG CAPSULES, HARD [Suspect]
     Active Substance: TRAMADOL
     Indication: HYPERMOBILITY SYNDROME
  19. COCODAMOL [Suspect]
     Active Substance: ACETAMINOPHEN\CODEINE PHOSPHATE
     Indication: HYPERMOBILITY SYNDROME
  20. DICLOFENAC [Suspect]
     Active Substance: DICLOFENAC
     Indication: PAIN
     Dosage: UNK UNK,UNK,
     Route: 065
  21. TRAMADOL 50MG CAPSULES, HARD [Suspect]
     Active Substance: TRAMADOL
     Indication: RHEUMATOID ARTHRITIS
  22. NAPROXEN TABLETS 250 MG [Suspect]
     Active Substance: NAPROXEN
     Indication: OSTEOPOROSIS
  23. COCODAMOL [Suspect]
     Active Substance: ACETAMINOPHEN\CODEINE PHOSPHATE
     Indication: PAIN
     Dosage: UNK UNK,UNK,
     Route: 065
  24. COCODAMOL [Suspect]
     Active Substance: ACETAMINOPHEN\CODEINE PHOSPHATE
     Indication: MYALGIA
  25. COCODAMOL [Suspect]
     Active Substance: ACETAMINOPHEN\CODEINE PHOSPHATE
     Indication: OSTEOPOROSIS
  26. DICLOFENAC [Suspect]
     Active Substance: DICLOFENAC
     Indication: RHEUMATOID ARTHRITIS
  27. LEFLUNOMIDE. [Suspect]
     Active Substance: LEFLUNOMIDE
     Indication: PAIN
     Dosage: UNK UNK,UNK,
     Route: 065
  28. NAPROXEN TABLETS 250 MG [Suspect]
     Active Substance: NAPROXEN
     Indication: PAIN
     Dosage: UNK UNK,UNK,
     Route: 065
  29. DICLOFENAC [Suspect]
     Active Substance: DICLOFENAC
     Indication: MYALGIA
  30. LEFLUNOMIDE. [Suspect]
     Active Substance: LEFLUNOMIDE
     Indication: HYPERMOBILITY SYNDROME

REACTIONS (2)
  - Suicidal ideation [Unknown]
  - Drug ineffective [Unknown]
